FAERS Safety Report 19215641 (Version 3)
Quarter: 2021Q2

REPORT INFORMATION
  Report Type: Report from Study
  Country: US (occurrence: US)
  Receive Date: 20210505
  Receipt Date: 20210610
  Transmission Date: 20210717
  Serious: No
  Sender: FDA-Public Use
  Company Number: NVSC2021US101014

PATIENT
  Sex: Female

DRUGS (4)
  1. TABRECTA [Suspect]
     Active Substance: CAPMATINIB
     Indication: LUNG NEOPLASM MALIGNANT
     Dosage: 200 MG, BID(3 WEEKS AGO)
     Route: 048
  2. TABRECTA [Suspect]
     Active Substance: CAPMATINIB
     Route: 048
  3. TABRECTA [Suspect]
     Active Substance: CAPMATINIB
     Indication: LUNG NEOPLASM MALIGNANT
     Dosage: 300 UNK
     Route: 048
  4. TABRECTA [Suspect]
     Active Substance: CAPMATINIB
     Dosage: 300 UNK, QD
     Route: 065

REACTIONS (6)
  - Weight increased [Recovering/Resolving]
  - Increased appetite [Recovering/Resolving]
  - Energy increased [Recovering/Resolving]
  - Seborrhoea [Not Recovered/Not Resolved]
  - Oxygen consumption decreased [Recovered/Resolved]
  - Peripheral swelling [Not Recovered/Not Resolved]
